FAERS Safety Report 22359277 (Version 1)
Quarter: 2023Q2

REPORT INFORMATION
  Report Type: Spontaneous
  Country: DE (occurrence: DE)
  Receive Date: 20230524
  Receipt Date: 20230524
  Transmission Date: 20230722
  Serious: Yes (Other)
  Sender: FDA-Public Use
  Company Number: DE-VIIV HEALTHCARE LIMITED-DE2023EME058554

PATIENT

DRUGS (1)
  1. DOVATO [Suspect]
     Active Substance: DOLUTEGRAVIR SODIUM\LAMIVUDINE
     Indication: HIV infection
     Dosage: UNK UNK, 1D, SINGLE DOSE AND FREQUENCY
     Dates: start: 202302

REACTIONS (5)
  - Suicidal ideation [Recovered/Resolved]
  - Intentional self-injury [Unknown]
  - Behaviour disorder [Recovered/Resolved]
  - Persecutory delusion [Recovered/Resolved]
  - Intentional overdose [Unknown]

NARRATIVE: CASE EVENT DATE: 20230201
